FAERS Safety Report 15523380 (Version 1)
Quarter: 2018Q4

REPORT INFORMATION
  Report Type: Spontaneous
  Country: US (occurrence: US)
  Receive Date: 20181015
  Receipt Date: 20181015
  Transmission Date: 20190205
  Serious: Yes (Hospitalization)
  Sender: FDA-Public Use
  Company Number: None

PATIENT
  Age: 72 Year
  Sex: Female
  Weight: 61.69 kg

DRUGS (9)
  1. TRAZODONE [Concomitant]
     Active Substance: TRAZODONE HYDROCHLORIDE
  2. ESCITALOPRAM [Concomitant]
     Active Substance: ESCITALOPRAM OXALATE
  3. ONDANSETRON [Concomitant]
     Active Substance: ONDANSETRON
  4. POLYTHYLENE [Concomitant]
  5. LIDOCAINE. [Concomitant]
     Active Substance: LIDOCAINE
  6. LEVOTHYROXINE. [Concomitant]
     Active Substance: LEVOTHYROXINE
  7. LONSURF [Suspect]
     Active Substance: TIPIRACIL HYDROCHLORIDE\TRIFLURIDINE
     Indication: NEOPLASM MALIGNANT
     Route: 048
     Dates: start: 20180921
  8. FUROSEMIDE. [Concomitant]
     Active Substance: FUROSEMIDE
  9. LORATADINE. [Concomitant]
     Active Substance: LORATADINE

REACTIONS (5)
  - Haemoglobin decreased [None]
  - White blood cell count decreased [None]
  - Red blood cell count decreased [None]
  - Blood disorder [None]
  - Platelet count decreased [None]

NARRATIVE: CASE EVENT DATE: 20181010
